FAERS Safety Report 24685151 (Version 1)
Quarter: 2024Q4

REPORT INFORMATION
  Report Type: Spontaneous
  Country: US (occurrence: None)
  Receive Date: 20241127
  Receipt Date: 20241127
  Transmission Date: 20250115
  Serious: No
  Sender: Public
  Company Number: None

PATIENT
  Age: 68 Year
  Sex: Male

DRUGS (2)
  1. INFLIXIMAB-ABDA [Suspect]
     Active Substance: INFLIXIMAB-ABDA
     Indication: Colitis ulcerative
     Dosage: OTHER FREQUENCY : OTHER;?
     Route: 042
     Dates: start: 20240705, end: 20240705
  2. SODIUM CHLORIDE [Suspect]
     Active Substance: SODIUM CHLORIDE
     Dosage: OTHER FREQUENCY : OTHER;?
     Route: 042
     Dates: start: 20240705, end: 20240705

REACTIONS (10)
  - Hypotension [None]
  - Infusion related reaction [None]
  - Therapy interrupted [None]
  - Vision blurred [None]
  - Dizziness [None]
  - Photopsia [None]
  - Pallor [None]
  - Cold sweat [None]
  - Blood glucose increased [None]
  - Blood pressure fluctuation [None]

NARRATIVE: CASE EVENT DATE: 20240705
